FAERS Safety Report 12851501 (Version 2)
Quarter: 2016Q4

REPORT INFORMATION
  Report Type: Spontaneous
  Country: US (occurrence: US)
  Receive Date: 20161016
  Receipt Date: 20161102
  Transmission Date: 20170207
  Serious: No
  Sender: FDA-Public Use
  Company Number: US-TAIHO ONCOLOGY INC-EU-2016-02657

PATIENT
  Age: 37 Year
  Sex: Male
  Weight: 69.7 kg

DRUGS (7)
  1. LORAZEPAM. [Concomitant]
     Active Substance: LORAZEPAM
     Route: 048
  2. MSIR [Concomitant]
     Active Substance: MORPHINE SULFATE
     Dosage: PRN
     Route: 048
  3. MUCINEX [Concomitant]
     Active Substance: GUAIFENESIN
     Dosage: PRN
     Route: 048
  4. HYCODAN [Concomitant]
     Active Substance: HOMATROPINE METHYLBROMIDE\HYDROCODONE BITARTRATE
     Dosage: PRN
     Route: 048
  5. LUNESTA [Concomitant]
     Active Substance: ESZOPICLONE
     Dosage: PRN
     Route: 048
  6. LONSURF [Suspect]
     Active Substance: TIPIRACIL HYDROCHLORIDE\TRIFLURIDINE
     Indication: COLORECTAL CANCER METASTATIC
     Route: 048
     Dates: start: 20160807, end: 20160901
  7. DILAUDID [Concomitant]
     Active Substance: HYDROMORPHONE HYDROCHLORIDE
     Route: 048

REACTIONS (7)
  - Retching [Recovering/Resolving]
  - Disease progression [Unknown]
  - Diarrhoea [Recovering/Resolving]
  - Cough [Unknown]
  - Fatigue [Recovering/Resolving]
  - Nausea [Recovering/Resolving]
  - Chest pain [Unknown]

NARRATIVE: CASE EVENT DATE: 2016
